FAERS Safety Report 19736457 (Version 1)
Quarter: 2021Q3

REPORT INFORMATION
  Report Type: Spontaneous
  Country: NL (occurrence: NL)
  Receive Date: 20210823
  Receipt Date: 20210823
  Transmission Date: 20211014
  Serious: Yes (Death)
  Sender: FDA-Public Use
  Company Number: NL-MYLANLABS-2021M1053275

PATIENT
  Age: 69 Year
  Sex: Female
  Weight: 65 kg

DRUGS (3)
  1. PERJETA [Concomitant]
     Active Substance: PERTUZUMAB
     Dosage: UNK (IV 840 MG)
  2. KANJINTI [Concomitant]
     Active Substance: TRASTUZUMAB-ANNS
     Dosage: 650 MILLIGRAM
     Route: 042
  3. CAPECITABINE. [Suspect]
     Active Substance: CAPECITABINE
     Indication: BREAST CANCER
     Dosage: 1150 MILLIGRAM, BID,  2X DAILY 1150 MG 14 DAYS COURSE 1 START 07?01?2020 (DOSING 50%)
     Dates: start: 20210107, end: 20210118

REACTIONS (3)
  - Stomatitis [Fatal]
  - Gastrointestinal inflammation [Fatal]
  - Diarrhoea [Fatal]

NARRATIVE: CASE EVENT DATE: 20210114
